FAERS Safety Report 5480166-5 (Version None)
Quarter: 2007Q4

REPORT INFORMATION
  Report Type: 
  Country: None (occurrence: None)
  Receive Date: 20071003
  Receipt Date: 20070918
  Transmission Date: 20080405
  Serious: Yes (Life-Threatening, Hospitalization, Disabling, Other)
  Sender: FDA-Public Use
  Company Number: 2007RR-10118

PATIENT
  Age: 77 Year
  Sex: Female
  Weight: 91.5 kg

DRUGS (9)
  1. LISINOPRIL [Suspect]
     Dosage: 10 MG, ORAL
     Route: 048
     Dates: start: 20070316, end: 20070906
  2. DISPERSIBLE ASPIRIN (ASPIRIN) [Concomitant]
  3. ATORVASTATIN CALCIUM [Concomitant]
  4. FERROUS SULPHATE (IRON) [Concomitant]
  5. LEFLUNOMIDE [Concomitant]
  6. LOSARTAN POTASSIUM [Concomitant]
  7. LOSEC (OMEPRAZIDE) [Concomitant]
  8. METFORMIN (METFORMIN HYDROCHLORIDE) [Concomitant]
  9. QUININE SULPHATE (QUININE) [Concomitant]

REACTIONS (1)
  - ANGIOEDEMA [None]
